FAERS Safety Report 4596260-7 (Version None)
Quarter: 2005Q1

REPORT INFORMATION
  Report Type: 
  Country: None (occurrence: None)
  Receive Date: 20050302
  Receipt Date: 20050223
  Transmission Date: 20050727
  Serious: Yes (Hospitalization)
  Sender: FDA-Public Use
  Company Number: US-JNJFOC-20050206229

PATIENT
  Sex: Female
  Weight: 65.32 kg

DRUGS (14)
  1. DURAGESIC-100 [Suspect]
     Dosage: ONE 50 UG/HR PATCH PLUS ONE 25 UG/HR PATCH SEP TO OCT-2004. SWITCHED TO ONE 75 UG/HR PATCH OCT-2004.
     Route: 062
     Dates: start: 20040901
  2. DURAGESIC-100 [Suspect]
     Route: 062
     Dates: start: 20040901
  3. PLAVIX [Concomitant]
     Route: 049
     Dates: start: 20040101
  4. LANOXIN [Concomitant]
     Indication: ATRIAL FIBRILLATION
     Route: 049
  5. TOPROL-XL [Concomitant]
     Indication: HYPERTENSION
     Route: 049
  6. LOTREL [Concomitant]
     Route: 049
     Dates: start: 20050201
  7. LOTREL [Concomitant]
     Indication: HYPERTENSION
     Dosage: 10/20 MG, 1 IN 24 HOURS
     Route: 049
     Dates: start: 20050201
  8. FUROSEMIDE [Concomitant]
     Route: 049
     Dates: start: 20030101
  9. ZOCOR [Concomitant]
     Route: 049
     Dates: start: 20030101
  10. DOXEPIN HCL [Concomitant]
     Route: 049
     Dates: start: 20040101
  11. NEURONTIN [Concomitant]
     Indication: PAIN
     Route: 049
     Dates: start: 20040101
  12. TOPAMAX [Concomitant]
     Indication: PAIN
     Route: 049
     Dates: start: 20040101
  13. GLUCOVANCE [Concomitant]
     Route: 049
  14. GLUCOVANCE [Concomitant]
     Dosage: 5/500 MG, 2 IN 24 HOURS
     Route: 049

REACTIONS (3)
  - INCISION SITE COMPLICATION [None]
  - POOR PERIPHERAL CIRCULATION [None]
  - POSTOPERATIVE WOUND COMPLICATION [None]
